FAERS Safety Report 18302596 (Version 3)
Quarter: 2022Q1

REPORT INFORMATION
  Report Type: Spontaneous
  Country: US (occurrence: CA)
  Receive Date: 20200923
  Receipt Date: 20220225
  Transmission Date: 20220424
  Serious: Yes (Hospitalization, Other)
  Sender: FDA-Public Use
  Company Number: CA-AUROBINDO-AUR-APL-2019-063671

PATIENT
  Age: 62 Year
  Sex: Female
  Weight: 87.986 kg

DRUGS (24)
  1. CIPROFLOXACIN [Interacting]
     Active Substance: CIPROFLOXACIN
     Indication: Lower respiratory tract infection
     Dosage: UNK UNK, BID
     Route: 048
  2. CIPROFLOXACIN [Interacting]
     Active Substance: CIPROFLOXACIN
     Indication: Sinusitis
  3. ACTEMRA [Interacting]
     Active Substance: TOCILIZUMAB
     Indication: Rheumatoid arthritis
     Dosage: 544 MG, Q4WK, THERAPY DUATION: 225 DAYS
     Route: 042
  4. ACTEMRA [Interacting]
     Active Substance: TOCILIZUMAB
     Indication: Rheumatoid arthritis
     Dosage: 590 MG, Q4WK, THERAPY DUATION: 55 DAYS
     Route: 042
  5. ACTEMRA [Interacting]
     Active Substance: TOCILIZUMAB
     Indication: Rheumatoid arthritis
     Dosage: 616 MG
     Route: 042
  6. ACTEMRA [Interacting]
     Active Substance: TOCILIZUMAB
     Indication: Rheumatoid arthritis
     Dosage: 616 MG, Q4WK, THERAPY DUATION: 884 DAYS
     Route: 042
  7. ACTEMRA [Interacting]
     Active Substance: TOCILIZUMAB
     Indication: Rheumatoid arthritis
     Dosage: 680 MG, Q4WK
     Route: 042
  8. AMLODIPINE [Suspect]
     Active Substance: AMLODIPINE BESYLATE
     Indication: Product used for unknown indication
     Dosage: UNK
     Route: 065
  9. DOMPERIDONE [Interacting]
     Active Substance: DOMPERIDONE
     Indication: Hiatus hernia
     Dosage: 10 MG, QID
     Route: 048
  10. ESOMEPRAZOLE MAGNESIUM [Suspect]
     Active Substance: ESOMEPRAZOLE MAGNESIUM
     Indication: Product used for unknown indication
     Dosage: 40 MG, BID
     Route: 065
  11. PERINDOPRIL [Suspect]
     Active Substance: PERINDOPRIL
     Indication: Product used for unknown indication
     Dosage: 8 MG, QD
     Route: 065
  12. ATENOLOL [Concomitant]
     Active Substance: ATENOLOL
     Indication: Product used for unknown indication
     Dosage: 25 MG, BID
     Route: 065
  13. ATIVAN [Concomitant]
     Active Substance: LORAZEPAM
     Indication: Product used for unknown indication
     Dosage: UNK
  14. DICYCLOMINE HYDROCHLORIDE [Concomitant]
     Active Substance: DICYCLOMINE HYDROCHLORIDE
     Indication: Product used for unknown indication
     Dosage: UNK
  15. EZETIMIBE [Concomitant]
     Active Substance: EZETIMIBE
     Dosage: 10 MG, QD
  16. HYDROCHLOROTHIAZIDE [Concomitant]
     Active Substance: HYDROCHLOROTHIAZIDE
     Indication: Product used for unknown indication
     Dosage: 25 MG
     Route: 065
  17. IRBESARTAN [Concomitant]
     Active Substance: IRBESARTAN
     Dosage: 25 MG, BID
  18. FENOFIBRATE [Concomitant]
     Active Substance: FENOFIBRATE
     Dosage: 145 MG
     Route: 065
  19. PANTOPRAZOLE SODIUM [Concomitant]
     Active Substance: PANTOPRAZOLE SODIUM
     Dosage: 25 MG, BID
  20. PAROXETINE HYDROCHLORIDE [Concomitant]
     Active Substance: PAROXETINE HYDROCHLORIDE
     Dosage: 30 MG
     Route: 048
  21. PAROXETINE HYDROCHLORIDE [Concomitant]
     Active Substance: PAROXETINE HYDROCHLORIDE
     Dosage: 20 MG
     Route: 065
  22. PREDNISONE [Concomitant]
     Active Substance: PREDNISONE
     Indication: Product used for unknown indication
     Dosage: 7.5 MG, QD
     Route: 048
  23. SIMVASTATIN [Concomitant]
     Active Substance: SIMVASTATIN
  24. PANTOPRAZOLE MAGNESIUM [Concomitant]
     Active Substance: PANTOPRAZOLE MAGNESIUM

REACTIONS (51)
  - Blood cholesterol increased [Not Recovered/Not Resolved]
  - Abdominal pain lower [None]
  - Anxiety [None]
  - Aphthous ulcer [None]
  - Arthralgia [None]
  - Blood pressure diastolic abnormal [None]
  - Blood pressure diastolic decreased [None]
  - Blood pressure fluctuation [None]
  - Blood pressure increased [None]
  - Blood pressure systolic increased [None]
  - Chest pain [None]
  - Chronic sinusitis [None]
  - Cough [None]
  - Dizziness [None]
  - Drug interaction [None]
  - Fall [None]
  - Fungal infection [None]
  - Headache [None]
  - Heart rate decreased [None]
  - Hip fracture [None]
  - Increased appetite [None]
  - Infusion related reaction [None]
  - Injection site extravasation [None]
  - Joint dislocation [None]
  - Joint stiffness [None]
  - Joint swelling [None]
  - Loss of personal independence in daily activities [None]
  - Lower respiratory tract infection [None]
  - Musculoskeletal stiffness [None]
  - Nasal congestion [None]
  - Oral herpes [None]
  - Oropharyngeal pain [None]
  - Oxygen saturation decreased [None]
  - Pain [None]
  - Pain in extremity [None]
  - Pain in jaw [None]
  - Palpitations [None]
  - Paranasal sinus discomfort [None]
  - Red blood cell sedimentation rate increased [None]
  - Rhinalgia [None]
  - Sinus congestion [None]
  - Sinusitis [None]
  - Stress [None]
  - Swelling [None]
  - Throat irritation [None]
  - Upper-airway cough syndrome [None]
  - Urinary tract infection [None]
  - Vulvovaginal burning sensation [None]
  - Vulvovaginal pruritus [None]
  - Weight increased [None]
  - White blood cell count decreased [None]
